FAERS Safety Report 21463917 (Version 1)
Quarter: 2022Q4

REPORT INFORMATION
  Report Type: Other
  Country: US (occurrence: None)
  Receive Date: 20221017
  Receipt Date: 20221017
  Transmission Date: 20230112
  Serious: Yes (Other)
  Sender: FDA-Public Use
  Company Number: US-ROCHE-3063150

PATIENT
  Sex: Female

DRUGS (10)
  1. ERIVEDGE [Suspect]
     Active Substance: VISMODEGIB
     Indication: Basal cell carcinoma
     Dosage: TAKE 1 CAPSULE BY MOUTH EVERY DAY
     Route: 048
  2. TYLENOL [Concomitant]
     Active Substance: ACETAMINOPHEN
  3. CLOBETASOL [Concomitant]
     Active Substance: CLOBETASOL
     Route: 061
  4. EFUDEX [Concomitant]
     Active Substance: FLUOROURACIL
     Route: 061
  5. IMIQUIMOD [Concomitant]
     Active Substance: IMIQUIMOD
     Dosage: AT PM
     Route: 061
  6. MUPIROCIN [Concomitant]
     Active Substance: MUPIROCIN
     Dosage: UNTIL HEATED
     Route: 061
  7. AMIODARONE [Concomitant]
     Active Substance: AMIODARONE
     Route: 048
  8. HYDROXYZINE HYDROCHLORIDE [Concomitant]
     Active Substance: HYDROXYZINE HYDROCHLORIDE
     Route: 048
  9. LOSARTAN [Concomitant]
     Active Substance: LOSARTAN
     Route: 048
  10. SIMVASTATIN [Concomitant]
     Active Substance: SIMVASTATIN
     Route: 048

REACTIONS (7)
  - Alopecia [Not Recovered/Not Resolved]
  - Haemorrhage [Recovered/Resolved]
  - Headache [Not Recovered/Not Resolved]
  - Rash [Unknown]
  - Upper limb fracture [Unknown]
  - Asthenia [Not Recovered/Not Resolved]
  - Kidney infection [Unknown]
